FAERS Safety Report 7302571-4 (Version None)
Quarter: 2011Q1

REPORT INFORMATION
  Report Type: 
  Country: None (occurrence: None)
  Receive Date: 20110218
  Receipt Date: 20110216
  Transmission Date: 20110831
  Serious: No
  Sender: FDA-Public Use
  Company Number: US-PFIZER INC-2011034994

PATIENT
  Sex: Female

DRUGS (1)
  1. EFFEXOR [Suspect]
     Dosage: 37.5 MG, 2X/DAY
     Route: 048
     Dates: start: 20080101, end: 20110215

REACTIONS (2)
  - DRUG INEFFECTIVE [None]
  - MALAISE [None]
